FAERS Safety Report 21154126 (Version 1)
Quarter: 2022Q3

REPORT INFORMATION
  Report Type: Spontaneous
  Country: GB (occurrence: GB)
  Receive Date: 20220801
  Receipt Date: 20220801
  Transmission Date: 20221027
  Serious: Yes (Disabling, Other)
  Sender: FDA-Public Use
  Company Number: None

PATIENT
  Age: 27 Year
  Sex: Female
  Weight: 72 kg

DRUGS (3)
  1. NEXPLANON [Suspect]
     Active Substance: ETONOGESTREL
     Indication: Intermenstrual bleeding
     Dosage: UNK
  2. DESOGESTREL [Suspect]
     Active Substance: DESOGESTREL
     Indication: Intermenstrual bleeding
     Dosage: UNK
  3. DESOGESTREL [Concomitant]
     Active Substance: DESOGESTREL
     Dosage: UNK

REACTIONS (1)
  - Postprandial hypoglycaemia [Recovered/Resolved]
